FAERS Safety Report 6566806-8 (Version None)
Quarter: 2010Q1

REPORT INFORMATION
  Report Type: 
  Country: None (occurrence: None)
  Receive Date: 20100202
  Receipt Date: 20100121
  Transmission Date: 20100710
  Serious: Yes (Hospitalization)
  Sender: FDA-Public Use
  Company Number: ES-WYE-G05408110

PATIENT
  Age: 62 Year
  Sex: Female

DRUGS (5)
  1. VANDRAL RETARD [Suspect]
     Indication: DEPRESSION
     Route: 048
     Dates: start: 20081201, end: 20090801
  2. ZYPREXA [Concomitant]
     Indication: DEPRESSION
     Route: 048
     Dates: start: 20090803, end: 20090803
  3. TRANKIMAZIN [Concomitant]
     Indication: ANXIETY
     Route: 048
     Dates: start: 20090601, end: 20090803
  4. NOCTAMID [Concomitant]
     Indication: ANXIETY
     Dosage: NOCTAMIG 1 MG, UNKNOWN
     Route: 048
     Dates: start: 20081201
  5. REXER [Interacting]
     Indication: DEPRESSION
     Route: 048
     Dates: start: 20090601, end: 20090802

REACTIONS (7)
  - CARDIAC MURMUR [None]
  - DRUG INTERACTION [None]
  - HYPONATRAEMIC ENCEPHALOPATHY [None]
  - LEFT VENTRICULAR DYSFUNCTION [None]
  - MITRAL VALVE INCOMPETENCE [None]
  - MYOCARDIAL INFARCTION [None]
  - PULMONARY OEDEMA [None]
